FAERS Safety Report 20855499 (Version 1)
Quarter: 2022Q2

REPORT INFORMATION
  Report Type: Spontaneous
  Country: US (occurrence: None)
  Receive Date: 20220520
  Receipt Date: 20220520
  Transmission Date: 20220720
  Serious: No
  Sender: FDA-Public Use
  Company Number: None

PATIENT
  Age: 63 Year
  Sex: Male

DRUGS (1)
  1. ERLOTINIB [Suspect]
     Active Substance: ERLOTINIB
     Indication: Lung neoplasm malignant
     Dosage: 150 MG DAILY ORAL?
     Route: 048
     Dates: start: 202205

REACTIONS (4)
  - Pain [None]
  - Constipation [None]
  - Depression [None]
  - Malignant neoplasm progression [None]

NARRATIVE: CASE EVENT DATE: 20220506
